FAERS Safety Report 10696973 (Version 1)
Quarter: 2015Q1

REPORT INFORMATION
  Report Type: Report from Study
  Country: US (occurrence: US)
  Receive Date: 20150108
  Receipt Date: 20150108
  Transmission Date: 20150721
  Serious: Yes (Hospitalization, Other)
  Sender: FDA-Public Use
  Company Number: US-BIOGENIDEC-2015BI000689

PATIENT
  Age: 55 Year
  Sex: Female

DRUGS (2)
  1. TYSABRI [Suspect]
     Active Substance: NATALIZUMAB
     Indication: MULTIPLE SCLEROSIS
     Route: 042
     Dates: start: 20130327
  2. TYSABRI [Suspect]
     Active Substance: NATALIZUMAB
     Indication: MULTIPLE SCLEROSIS
     Route: 042
     Dates: start: 20090901, end: 20120220

REACTIONS (13)
  - Discomfort [Not Recovered/Not Resolved]
  - Seizure [Recovered/Resolved]
  - Chronic kidney disease [Not Recovered/Not Resolved]
  - Back pain [Recovered/Resolved with Sequelae]
  - Hypotension [Recovered/Resolved]
  - Fall [Recovered/Resolved]
  - Oedema [Recovered/Resolved]
  - Hypoaesthesia [Not Recovered/Not Resolved]
  - Loss of consciousness [Recovered/Resolved]
  - Fractured sacrum [Recovered/Resolved]
  - Electrolyte imbalance [Recovered/Resolved]
  - Visual impairment [Not Recovered/Not Resolved]
  - Hyperaesthesia [Not Recovered/Not Resolved]

NARRATIVE: CASE EVENT DATE: 2010
